FAERS Safety Report 22073702 (Version 1)
Quarter: 2023Q1

REPORT INFORMATION
  Report Type: Spontaneous
  Country: PT (occurrence: PT)
  Receive Date: 20230308
  Receipt Date: 20230308
  Transmission Date: 20230418
  Serious: Yes (Hospitalization, Other)
  Sender: FDA-Public Use
  Company Number: PT-SA-2023SA070741

PATIENT
  Age: 74 Year
  Sex: Female

DRUGS (2)
  1. ENOXAPARIN SODIUM [Suspect]
     Active Substance: ENOXAPARIN SODIUM
     Indication: Pulmonary embolism
     Dosage: 1 MG/KG, Q12H
     Dates: start: 202101
  2. OXYGEN [Concomitant]
     Active Substance: OXYGEN
     Indication: COVID-19
     Dosage: UNK
     Dates: start: 202101

REACTIONS (6)
  - Shock haemorrhagic [Not Recovered/Not Resolved]
  - Vomiting [Not Recovered/Not Resolved]
  - Nervous system disorder [Unknown]
  - Retroperitoneal haemorrhage [Not Recovered/Not Resolved]
  - Retroperitoneal haematoma [Not Recovered/Not Resolved]
  - Abdominal pain [Not Recovered/Not Resolved]

NARRATIVE: CASE EVENT DATE: 20210101
